FAERS Safety Report 5418192-4 (Version None)
Quarter: 2007Q3

REPORT INFORMATION
  Report Type: 
  Country: None (occurrence: None)
  Receive Date: 20070817
  Receipt Date: 20070813
  Transmission Date: 20080115
  Serious: Yes (Hospitalization)
  Sender: FDA-Public Use
  Company Number: FR-ELI_LILLY_AND_COMPANY-FR200702002425

PATIENT
  Age: 15 Year
  Sex: Male
  Weight: 67.8 kg

DRUGS (2)
  1. UMATROPE [Suspect]
     Indication: GROWTH HORMONE DEFICIENCY
     Dosage: 1.7 MG, DAILY (1/D)
     Route: 058
     Dates: start: 20000901, end: 20070704
  2. LEVOTHYROXINE SODIUM [Concomitant]
     Indication: HYPOTHYROIDISM
     Dosage: 75 UG, DAILY (1/D)
     Route: 048
     Dates: start: 20000101

REACTIONS (1)
  - SCROTAL OEDEMA [None]
